FAERS Safety Report 5002760-8 (Version None)
Quarter: 2006Q2

REPORT INFORMATION
  Report Type: 
  Country: None (occurrence: None)
  Receive Date: 20060516
  Receipt Date: 20060505
  Transmission Date: 20061013
  Serious: Yes (Other)
  Sender: FDA-Public Use
  Company Number: US-JNJFOC-20060502315

PATIENT
  Sex: Female
  Weight: 42.64 kg

DRUGS (1)
  1. ELMIRON [Suspect]
     Indication: CYSTITIS INTERSTITIAL
     Route: 048

REACTIONS (3)
  - CYSTITIS INTERSTITIAL [None]
  - URINARY TRACT INFECTION [None]
  - WEIGHT DECREASED [None]
